FAERS Safety Report 25385405 (Version 1)
Quarter: 2025Q2

REPORT INFORMATION
  Report Type: Spontaneous
  Country: US (occurrence: US)
  Receive Date: 20250602
  Receipt Date: 20250602
  Transmission Date: 20250717
  Serious: No
  Sender: IPSEN BIOPHARMACEUTICALS, INC.
  Company Number: US-IPSEN Group, Research and Development-2025-12637

PATIENT
  Age: 74 Year
  Sex: Male
  Weight: 88 kg

DRUGS (13)
  1. TAZVERIK [Suspect]
     Active Substance: TAZEMETOSTAT HYDROBROMIDE
     Indication: Follicular lymphoma stage I
     Route: 048
     Dates: start: 20221114
  2. CARVEDILOL [Concomitant]
     Active Substance: CARVEDILOL
  3. CLARITIN [Concomitant]
     Active Substance: LORATADINE
  4. ELIQUIS [Concomitant]
     Active Substance: APIXABAN
  5. FUROSEMIDE [Concomitant]
     Active Substance: FUROSEMIDE
  6. ACETAMINOPHEN\HYDROCODONE [Concomitant]
     Active Substance: ACETAMINOPHEN\HYDROCODONE
  7. LIDOCAINE AND PRILOCAINE [Concomitant]
     Active Substance: LIDOCAINE\PRILOCAINE
  8. MUCINEX [Concomitant]
     Active Substance: GUAIFENESIN
  9. PREDNISONE [Concomitant]
     Active Substance: PREDNISONE
  10. SPIRONOLACTONE [Concomitant]
     Active Substance: SPIRONOLACTONE
  11. THEOPHYLLINE [Concomitant]
     Active Substance: THEOPHYLLINE
  12. TRELEGY ELLIPTA [Concomitant]
     Active Substance: FLUTICASONE FUROATE\UMECLIDINIUM BROMIDE\VILANTEROL TRIFENATATE
  13. XANAX [Concomitant]
     Active Substance: ALPRAZOLAM

REACTIONS (2)
  - Fatigue [Unknown]
  - Dyspnoea [Unknown]
